FAERS Safety Report 5199191-7 (Version None)
Quarter: 2007Q1

REPORT INFORMATION
  Report Type: 
  Country: None (occurrence: None)
  Receive Date: 20070104
  Receipt Date: 20061227
  Transmission Date: 20070707
  Serious: Yes (Disabling)
  Sender: FDA-Public Use
  Company Number: US-PFIZER INC-2006135756

PATIENT
  Sex: Female

DRUGS (3)
  1. DEPO-MEDROL [Suspect]
     Indication: BACK PAIN
     Dates: start: 20060601, end: 20060601
  2. NEURONTIN [Suspect]
     Dates: start: 20060601, end: 20060101
  3. LYRICA [Suspect]
     Dates: start: 20060101, end: 20060901

REACTIONS (6)
  - BACK PAIN [None]
  - COGNITIVE DISORDER [None]
  - DISABILITY [None]
  - DRUG INEFFECTIVE [None]
  - PAIN IN EXTREMITY [None]
  - THINKING ABNORMAL [None]
